FAERS Safety Report 24096912 (Version 1)
Quarter: 2024Q3

REPORT INFORMATION
  Report Type: Spontaneous
  Country: US (occurrence: US)
  Receive Date: 20240716
  Receipt Date: 20240716
  Transmission Date: 20241016
  Serious: No
  Sender: GRIFOLS
  Company Number: US-IGSA-BIG0025219

PATIENT
  Sex: Female

DRUGS (26)
  1. GAMUNEX-C [Suspect]
     Active Substance: HUMAN IMMUNOGLOBULIN G
     Indication: Asthma
     Dosage: 6 GRAM, Q.2WK.
     Route: 058
     Dates: start: 20230730
  2. GAMUNEX-C [Suspect]
     Active Substance: HUMAN IMMUNOGLOBULIN G
     Indication: Off label use
  3. RESTASIS [Concomitant]
     Active Substance: CYCLOSPORINE
  4. TYRVAYA [Concomitant]
     Active Substance: VARENICLINE TARTRATE
  5. MELOXICAM [Concomitant]
     Active Substance: MELOXICAM
     Dosage: 15 MILLIGRAM
  6. ROBAXIN [Concomitant]
     Active Substance: METHOCARBAMOL
  7. TYLENOL [Concomitant]
     Active Substance: ACETAMINOPHEN
  8. IPRATROPIUM [Concomitant]
     Active Substance: IPRATROPIUM
  9. DUPIXENT [Concomitant]
     Active Substance: DUPILUMAB
  10. PREDNISONE [Concomitant]
     Active Substance: PREDNISONE
     Dosage: 20 MILLIGRAM
  11. PLAQUENIL [Concomitant]
     Active Substance: HYDROXYCHLOROQUINE SULFATE
     Dosage: 200 MILLIGRAM
  12. PHENYLEPHRINE HYDROCHLORIDE [Concomitant]
     Active Substance: PHENYLEPHRINE HYDROCHLORIDE
     Route: 045
  13. NASACORT [Concomitant]
     Active Substance: TRIAMCINOLONE ACETONIDE
  14. LEVAQUIN [Concomitant]
     Active Substance: LEVOFLOXACIN
     Dosage: 750 MILLIGRAM
  15. TESSALON [Concomitant]
     Active Substance: BENZONATATE
     Dosage: 100 MILLIGRAM
  16. SPORANOX [Concomitant]
     Active Substance: ITRACONAZOLE
     Dosage: 100 UNKNOWN
  17. CLINDAMYCIN [Concomitant]
     Active Substance: CLINDAMYCIN
  18. CYTOMEL [Concomitant]
     Active Substance: LIOTHYRONINE SODIUM
     Dosage: 50 MICROGRAM
  19. KETOROLAC [Concomitant]
     Active Substance: KETOROLAC TROMETHAMINE
  20. LEVOFLOXACIN [Concomitant]
     Active Substance: LEVOFLOXACIN
     Dosage: 500 MILLIGRAM
  21. PHENTERMINE [Concomitant]
     Active Substance: PHENTERMINE
     Dosage: 37.5 MILLIGRAM
  22. POTASSIUM CHLORIDE [Concomitant]
     Active Substance: POTASSIUM CHLORIDE
  23. PROMETHAZINE [Concomitant]
     Active Substance: PROMETHAZINE HYDROCHLORIDE
  24. PROVENTIL HFA [Concomitant]
     Active Substance: ALBUTEROL SULFATE
  25. SYNTHROID [Concomitant]
     Active Substance: LEVOTHYROXINE SODIUM
     Dosage: 137 MICROGRAM
  26. WELLBUTRIN [Concomitant]
     Active Substance: BUPROPION HYDROCHLORIDE
     Dosage: 150 MILLIGRAM

REACTIONS (3)
  - Asthenia [Recovered/Resolved]
  - Sluggishness [Recovered/Resolved]
  - Influenza like illness [Recovered/Resolved]
